FAERS Safety Report 12269606 (Version 1)
Quarter: 2016Q2

REPORT INFORMATION
  Report Type: Spontaneous
  Country: SE (occurrence: SE)
  Receive Date: 20160414
  Receipt Date: 20160414
  Transmission Date: 20160815
  Serious: Yes (Hospitalization)
  Sender: FDA-Public Use
  Company Number: SE-TEVA-650621ISR

PATIENT
  Age: 80 Year
  Sex: Male

DRUGS (1)
  1. ALFUZOSIN [Suspect]
     Active Substance: ALFUZOSIN

REACTIONS (3)
  - Traumatic intracranial haemorrhage [Unknown]
  - Orthostatic hypotension [Unknown]
  - Fall [Unknown]
